FAERS Safety Report 13092119 (Version 1)
Quarter: 2017Q1

REPORT INFORMATION
  Report Type: Spontaneous
  Country: JP (occurrence: JP)
  Receive Date: 20170106
  Receipt Date: 20170106
  Transmission Date: 20170428
  Serious: Yes (Other)
  Sender: FDA-Public Use
  Company Number: JP-B.I. PHARMACEUTICALS,INC./RIDGEFIELD-2017-BI-000603

PATIENT
  Age: 41 Year
  Sex: Female

DRUGS (3)
  1. AFATINIB [Suspect]
     Active Substance: AFATINIB
     Indication: METASTASES TO MENINGES
     Dosage: 3 AND 4 MOTHS ON A DOSE OF 40 MG DAILY
     Route: 065
  2. GEFITINIB [Concomitant]
     Active Substance: GEFITINIB
     Indication: LUNG ADENOCARCINOMA STAGE IV
     Route: 065
  3. AFATINIB [Suspect]
     Active Substance: AFATINIB
     Dosage: 5 MONTHS ON A DOSE OF 30 MG
     Route: 065

REACTIONS (1)
  - Inflammation [Unknown]
